FAERS Safety Report 18991637 (Version 1)
Quarter: 2021Q1

REPORT INFORMATION
  Report Type: Spontaneous
  Country: US (occurrence: US)
  Receive Date: 20210309
  Receipt Date: 20210309
  Transmission Date: 20210420
  Serious: Yes (Other)
  Sender: FDA-Public Use
  Company Number: None

PATIENT
  Age: 92 Year
  Sex: Female
  Weight: 95.25 kg

DRUGS (18)
  1. LEVOXYL [Concomitant]
     Active Substance: LEVOTHYROXINE SODIUM
  2. FISH OIL [Concomitant]
     Active Substance: FISH OIL
  3. SPIRONOLACTONE. [Concomitant]
     Active Substance: SPIRONOLACTONE
  4. TRAZODONE [Concomitant]
     Active Substance: TRAZODONE HYDROCHLORIDE
  5. ASA [Concomitant]
     Active Substance: ASPIRIN
  6. MYRBETRIQ [Suspect]
     Active Substance: MIRABEGRON
     Indication: URINARY INCONTINENCE
     Dosage: ?          QUANTITY:1 DF DOSAGE FORM;?
     Route: 048
     Dates: start: 20201203
  7. COLACE [Concomitant]
     Active Substance: DOCUSATE SODIUM
  8. POTASSIUM [Concomitant]
     Active Substance: POTASSIUM
  9. NITRGLYCERINE [Concomitant]
  10. DILTIAZEM. [Concomitant]
     Active Substance: DILTIAZEM
  11. TORSEMIDE. [Concomitant]
     Active Substance: TORSEMIDE
  12. MULTVIT [Concomitant]
  13. DOXAZOSIN [Concomitant]
     Active Substance: DOXAZOSIN MESYLATE
  14. METFORMIN [Concomitant]
     Active Substance: METFORMIN HYDROCHLORIDE
  15. VIT B, C, D [Concomitant]
  16. O2 THERAPY [Concomitant]
  17. COENZYME Q10 [Concomitant]
     Active Substance: DIETARY SUPPLEMENT\UBIDECARENONE
  18. SLOW MAG [Concomitant]
     Active Substance: MAGNESIUM CHLORIDE

REACTIONS (5)
  - Psychotic disorder [None]
  - Abnormal dreams [None]
  - Nightmare [None]
  - Anxiety [None]
  - Delirium [None]

NARRATIVE: CASE EVENT DATE: 20201203
